FAERS Safety Report 18297731 (Version 3)
Quarter: 2020Q4

REPORT INFORMATION
  Report Type: Not Available
  Country: US (occurrence: US)
  Receive Date: 20200923
  Receipt Date: 20201105
  Transmission Date: 20210113
  Serious: No
  Sender: FDA-Public Use
  Company Number: US-NEUROCRINE BIOSCIENCES INC.-2020NBI03343

PATIENT
  Age: 57 Year
  Sex: Female

DRUGS (13)
  1. RELPAX [Concomitant]
     Active Substance: ELETRIPTAN HYDROBROMIDE
     Indication: MIGRAINE
  2. FISH OIL [Concomitant]
     Active Substance: FISH OIL
  3. INGREZZA [Suspect]
     Active Substance: VALBENAZINE
     Route: 048
     Dates: start: 20200903, end: 20200903
  4. METHYLPHENIDATE. [Concomitant]
     Active Substance: METHYLPHENIDATE
     Indication: ATTENTION DEFICIT HYPERACTIVITY DISORDER
     Dosage: 30/70
     Route: 048
     Dates: start: 20140110
  5. EXCEDRIN [Concomitant]
     Active Substance: ACETAMINOPHEN\ASPIRIN\CAFFEINE
  6. ESCITALOPRAM [Concomitant]
     Active Substance: ESCITALOPRAM OXALATE
     Indication: DEPRESSION
     Route: 048
     Dates: start: 20120608
  7. MAGNESIUM SUPPLEMENT [Concomitant]
     Active Substance: MAGNESIUM
     Indication: HEADACHE
  8. VITAMIN D [Concomitant]
     Active Substance: VITAMIN D NOS
  9. INGREZZA [Suspect]
     Active Substance: VALBENAZINE
     Indication: TARDIVE DYSKINESIA
     Route: 048
     Dates: start: 20200625
  10. INGREZZA [Suspect]
     Active Substance: VALBENAZINE
     Route: 048
     Dates: start: 20200806, end: 20200824
  11. TOPAMAX [Concomitant]
     Active Substance: TOPIRAMATE
     Indication: MIGRAINE
     Route: 048
     Dates: start: 20160318
  12. BUPROPION XL [Concomitant]
     Active Substance: BUPROPION
     Indication: DEPRESSION
     Route: 048
     Dates: start: 20200609
  13. INGREZZA [Suspect]
     Active Substance: VALBENAZINE
     Route: 048
     Dates: end: 20200805

REACTIONS (9)
  - Hepatic enzyme increased [Unknown]
  - Decreased appetite [Not Recovered/Not Resolved]
  - Feeling abnormal [Not Recovered/Not Resolved]
  - Vomiting [Recovered/Resolved]
  - Weight decreased [Unknown]
  - Headache [Not Recovered/Not Resolved]
  - Nausea [Recovered/Resolved]
  - Diarrhoea [Recovered/Resolved]
  - Pyrexia [Unknown]

NARRATIVE: CASE EVENT DATE: 2020
